FAERS Safety Report 5104768-0 (Version None)
Quarter: 2006Q3

REPORT INFORMATION
  Report Type: 
  Country: None (occurrence: None)
  Receive Date: 20060914
  Receipt Date: 20060519
  Transmission Date: 20061208
  Serious: Yes (Hospitalization)
  Sender: FDA-Public Use
  Company Number: 2006UW09919

PATIENT
  Age: 11 Year
  Sex: Male
  Weight: 35.5 kg

DRUGS (3)
  1. SEROQUEL [Suspect]
     Indication: BIPOLAR DISORDER
     Route: 048
  2. TRILEPTOL [Suspect]
     Indication: BIPOLAR DISORDER
     Dosage: 1/2 DF BID
     Route: 048
  3. ADDERALL 10 [Concomitant]
     Indication: ATTENTION DEFICIT/HYPERACTIVITY DISORDER
     Route: 048

REACTIONS (3)
  - PAIN [None]
  - PYELONEPHRITIS [None]
  - URINARY RETENTION [None]
